FAERS Safety Report 4984166-0 (Version None)
Quarter: 2006Q2

REPORT INFORMATION
  Report Type: 
  Country: None (occurrence: None)
  Receive Date: 20060425
  Receipt Date: 20060425
  Transmission Date: 20061013
  Serious: Yes (Hospitalization)
  Sender: FDA-Public Use
  Company Number: None

PATIENT
  Age: 74 Year
  Sex: Male
  Weight: 127.0072 kg

DRUGS (1)
  1. CARVEDILOL [Suspect]
     Indication: CORONARY ARTERY DISEASE
     Dosage: 25 MG PO BID
     Route: 048

REACTIONS (1)
  - BRADYCARDIA [None]
